FAERS Safety Report 23561778 (Version 1)
Quarter: 2024Q1

REPORT INFORMATION
  Report Type: Spontaneous
  Country: US (occurrence: US)
  Receive Date: 20240225
  Receipt Date: 20240225
  Transmission Date: 20240410
  Serious: Yes (Hospitalization)
  Sender: FDA-Public Use
  Company Number: US-PRINSTON PHARMACEUTICAL INC.-2024PRN00078

PATIENT
  Age: 74 Year
  Sex: Male

DRUGS (1)
  1. ENALAPRIL MALEATE [Suspect]
     Active Substance: ENALAPRIL MALEATE
     Indication: Hypertension
     Dosage: UNK
     Dates: start: 202303

REACTIONS (15)
  - Hospitalisation [Unknown]
  - Anger [Unknown]
  - Balance disorder [Unknown]
  - Decreased appetite [Unknown]
  - Fall [Unknown]
  - Blood pressure increased [Unknown]
  - Hypoaesthesia [Unknown]
  - Tremor [Unknown]
  - Weight decreased [Unknown]
  - Hypophagia [Unknown]
  - Vomiting [Unknown]
  - Dizziness [Unknown]
  - Paraesthesia [Unknown]
  - Depression [Unknown]
  - Product dose omission issue [Unknown]

NARRATIVE: CASE EVENT DATE: 20230101
